FAERS Safety Report 6224707-9 (Version None)
Quarter: 2009Q2

REPORT INFORMATION
  Report Type: 
  Country: None (occurrence: None)
  Receive Date: 20090612
  Receipt Date: 20090325
  Transmission Date: 20091009
  Serious: No
  Sender: FDA-Public Use
  Company Number: US-ABBOTT-09P-163-0564873-00

PATIENT
  Age: 30 Year
  Sex: Female

DRUGS (1)
  1. HUMIRA [Suspect]
     Indication: PSORIASIS
     Dosage: INITIAL LOADING DOSE
     Dates: start: 20090320, end: 20090320

REACTIONS (3)
  - HEADACHE [None]
  - VISION BLURRED [None]
  - VISUAL FIELD DEFECT [None]
